FAERS Safety Report 10025042 (Version 3)
Quarter: 2014Q4

REPORT INFORMATION
  Report Type: Spontaneous
  Country: US (occurrence: None)
  Receive Date: 20140318
  Receipt Date: 20141222
  Transmission Date: 20150528
  Serious: Yes (Hospitalization)
  Sender: FDA-Public Use
  Company Number: US-000886

PATIENT
  Age: 66 Year
  Sex: Female
  Weight: 62.14 kg

DRUGS (8)
  1. SODIUM CHLORIDE. [Concomitant]
     Active Substance: SODIUM CHLORIDE
  2. BLOOD AND RELATED PRODUCTS [Concomitant]
     Active Substance: HUMAN BLOOD CELLS
  3. SULFAMETHOXAZOLE AND TRIMETHOPRIM [Concomitant]
     Active Substance: SULFAMETHOXAZOLE\TRIMETHOPRIM
  4. ADDAMEL N/01793901/ (UNKNOWN) [Concomitant]
  5. GATTEX [Suspect]
     Active Substance: TEDUGLUTIDE\WATER
     Indication: SHORT-BOWEL SYNDROME
     Dosage: (0.325 ML QD, STREN/VOLUM:  0.325/FREQU:  DAILY SUBCUTANEOUS)
     Route: 058
     Dates: start: 20131129, end: 20140226
  6. SOLUTIONS FOR PARENTERAL NUTRITION [Concomitant]
     Active Substance: AMINO ACIDS\DEXTROSE\ELECTROLYTES NOS
  7. CYANOCOBALMINE [Concomitant]
  8. PROTONIX [Concomitant]
     Active Substance: PANTOPRAZOLE SODIUM

REACTIONS (10)
  - Feeling hot [None]
  - Dehydration [None]
  - Abdominal pain [None]
  - Small intestinal obstruction [None]
  - Abdominal distension [None]
  - Fatigue [None]
  - Abdominal pain upper [None]
  - Intestinal obstruction [None]
  - Weight decreased [None]
  - Constipation [None]

NARRATIVE: CASE EVENT DATE: 201312
